FAERS Safety Report 7367277-4 (Version None)
Quarter: 2011Q1

REPORT INFORMATION
  Report Type: 
  Country: None (occurrence: None)
  Receive Date: 20110322
  Receipt Date: 20110310
  Transmission Date: 20110831
  Serious: Yes (Other)
  Sender: FDA-Public Use
  Company Number: BR-GENENTECH-299002

PATIENT
  Sex: Female
  Weight: 76 kg

DRUGS (14)
  1. NORIPURUM [Concomitant]
     Indication: PRODUCT USED FOR UNKNOWN INDICATION
  2. RITUXIMAB [Suspect]
     Indication: RHEUMATOID ARTHRITIS
     Dosage: 1000 MG, 2/MONTH
     Route: 042
     Dates: start: 20090701, end: 20090701
  3. CARDILOL [Concomitant]
     Indication: PRODUCT USED FOR UNKNOWN INDICATION
     Dosage: UNK
  4. ANCORON [Concomitant]
     Indication: PRODUCT USED FOR UNKNOWN INDICATION
     Dosage: UNK
  5. LOSARTAN POTASSIUM [Concomitant]
     Indication: PRODUCT USED FOR UNKNOWN INDICATION
     Dosage: UNK
  6. ATENOLOL [Concomitant]
     Indication: PRODUCT USED FOR UNKNOWN INDICATION
  7. PREDNISONE [Concomitant]
     Indication: PRODUCT USED FOR UNKNOWN INDICATION
     Dosage: 5 MG, UNK
  8. UNSPECIFIED DRUG [Concomitant]
     Indication: PRODUCT USED FOR UNKNOWN INDICATION
  9. ASPIRIN [Concomitant]
     Indication: PRODUCT USED FOR UNKNOWN INDICATION
  10. RANITIDINE [Concomitant]
     Indication: PRODUCT USED FOR UNKNOWN INDICATION
     Dosage: 300 MG, UNK
  11. LASIX [Concomitant]
     Indication: PRODUCT USED FOR UNKNOWN INDICATION
     Dosage: UNK
  12. ALPRAZOLAM [Concomitant]
     Indication: PRODUCT USED FOR UNKNOWN INDICATION
     Dosage: .25 MG, UNK
  13. ENBREL [Concomitant]
     Indication: PRODUCT USED FOR UNKNOWN INDICATION
     Dosage: UNK
  14. RITUXIMAB [Suspect]
     Dosage: UNK
     Route: 042
     Dates: start: 20100101, end: 20100201

REACTIONS (6)
  - ARTHRALGIA [None]
  - ANAEMIA [None]
  - ASPARTATE AMINOTRANSFERASE ABNORMAL [None]
  - UTERINE POLYP [None]
  - ARTHRITIS [None]
  - ALANINE AMINOTRANSFERASE ABNORMAL [None]
